FAERS Safety Report 21177531 (Version 2)
Quarter: 2022Q4

REPORT INFORMATION
  Report Type: Spontaneous
  Country: US (occurrence: US)
  Receive Date: 20220805
  Receipt Date: 20221115
  Transmission Date: 20230113
  Serious: No
  Sender: FDA-Public Use
  Company Number: US-ALLERGAN-2222748US

PATIENT
  Sex: Male
  Weight: 70.76 kg

DRUGS (4)
  1. VUITY [Suspect]
     Active Substance: PILOCARPINE HYDROCHLORIDE
     Indication: Hypermetropia
     Dosage: 2 GTT, QD
     Dates: start: 20220622, end: 20220624
  2. BRILINTA [Concomitant]
     Active Substance: TICAGRELOR
  3. ASPIRIN [Concomitant]
     Active Substance: ASPIRIN
     Dosage: UNK, QD
  4. METOPROLOL [Concomitant]
     Active Substance: METOPROLOL
     Dosage: UNK, QD

REACTIONS (3)
  - Headache [Unknown]
  - Vision blurred [Unknown]
  - Lacrimation increased [Unknown]
